FAERS Safety Report 18005706 (Version 1)
Quarter: 2020Q3

REPORT INFORMATION
  Report Type: Report from Study
  Country: GT (occurrence: GT)
  Receive Date: 20200710
  Receipt Date: 20200710
  Transmission Date: 20201103
  Serious: Yes (Hospitalization, Other)
  Sender: FDA-Public Use
  Company Number: NVSC2020GT191637

PATIENT
  Age: 71 Year
  Sex: Female
  Weight: 74.83 kg

DRUGS (6)
  1. ATORVASTATIN [Suspect]
     Active Substance: ATORVASTATIN
     Indication: BLOOD CHOLESTEROL INCREASED
     Dosage: 1 DF, QD (DAILY AT NIGHT)
     Route: 065
  2. CARVEDILOL. [Suspect]
     Active Substance: CARVEDILOL
     Indication: CARDIAC FAILURE
     Dosage: 1 DF, QD (DAILY AT NIGHT)
     Route: 048
     Dates: start: 2019
  3. ATORVASTATIN [Suspect]
     Active Substance: ATORVASTATIN
     Indication: BLOOD TRIGLYCERIDES INCREASED
  4. FUROSEMIDE. [Suspect]
     Active Substance: FUROSEMIDE
     Indication: DIURETIC THERAPY
     Dosage: 0.5 DF
     Route: 048
  5. EXFORGE HCT [Suspect]
     Active Substance: AMLODIPINE BESYLATE\HYDROCHLOROTHIAZIDE\VALSARTAN
     Indication: HYPERTENSION
     Dosage: 0.5 DF, QD
     Route: 048
     Dates: start: 2016, end: 2018
  6. CODIOVAN [Suspect]
     Active Substance: HYDROCHLOROTHIAZIDE\VALSARTAN
     Indication: HYPERTENSION
     Dosage: 0.5 DF, BID (TWICE A HALF IN THE MORNING AND THE OTHER HALF IN THE AFTERNOON)
     Route: 048
     Dates: start: 2018, end: 20200310

REACTIONS (6)
  - Myocardial ischaemia [Recovering/Resolving]
  - Hypoacusis [Unknown]
  - Wrong technique in product usage process [Unknown]
  - Tension [Unknown]
  - Angina unstable [Unknown]
  - Fatigue [Unknown]

NARRATIVE: CASE EVENT DATE: 2018
